FAERS Safety Report 23780396 (Version 1)
Quarter: 2024Q2

REPORT INFORMATION
  Report Type: Report from Study
  Country: US (occurrence: US)
  Receive Date: 20240424
  Receipt Date: 20240424
  Transmission Date: 20240716
  Serious: Yes (Other)
  Sender: FDA-Public Use
  Company Number: US-ABBVIE-5727371

PATIENT
  Sex: Male

DRUGS (1)
  1. SKYRIZI [Suspect]
     Active Substance: RISANKIZUMAB-RZAA
     Indication: Psoriasis
     Dosage: FORM STRENGTH: 150 MILLIGRAM
     Route: 058

REACTIONS (16)
  - Joint arthroplasty [Unknown]
  - Blood pressure abnormal [Unknown]
  - Psoriatic arthropathy [Unknown]
  - Psoriasis [Unknown]
  - Arthropathy [Unknown]
  - Metal poisoning [Unknown]
  - Hip deformity [Unknown]
  - Pain [Unknown]
  - Spinal pain [Unknown]
  - Periprosthetic metallosis [Unknown]
  - Basal cell carcinoma [Unknown]
  - Osteoarthritis [Unknown]
  - Blood cholesterol abnormal [Unknown]
  - Noninfectious myelitis [Unknown]
  - Back disorder [Unknown]
  - Spinal disorder [Unknown]

NARRATIVE: CASE EVENT DATE: 20240101
